FAERS Safety Report 7594282-5 (Version None)
Quarter: 2011Q3

REPORT INFORMATION
  Report Type: 
  Country: None (occurrence: None)
  Receive Date: 20110706
  Receipt Date: 20110627
  Transmission Date: 20111222
  Serious: Yes (Hospitalization)
  Sender: FDA-Public Use
  Company Number: BR-ASTRAZENECA-2011SE25717

PATIENT
  Age: 50 Year
  Sex: Male
  Weight: 110 kg

DRUGS (2)
  1. ATACAND [Suspect]
     Indication: HYPERTENSION
     Route: 048
     Dates: start: 20060101, end: 20110301
  2. CARDIZEN [Concomitant]
     Route: 048
     Dates: start: 20090101, end: 20110301

REACTIONS (3)
  - DRUG INEFFECTIVE [None]
  - HEART RATE DECREASED [None]
  - BLOOD PRESSURE INADEQUATELY CONTROLLED [None]
